FAERS Safety Report 6175481-6 (Version None)
Quarter: 2009Q2

REPORT INFORMATION
  Report Type: 
  Country: None (occurrence: None)
  Receive Date: 20090430
  Receipt Date: 20090415
  Transmission Date: 20091009
  Serious: Yes (Other)
  Sender: FDA-Public Use
  Company Number: 8035592

PATIENT
  Age: 26 Year
  Sex: Female

DRUGS (4)
  1. KEPPRA [Suspect]
     Dosage: 1000 MG 2/D
  2. KEPPRA [Suspect]
     Dosage: 3000 MG 1/D
  3. ERGENYL [Concomitant]
  4. ETHOSUXIMIDE [Concomitant]

REACTIONS (3)
  - ABORTION SPONTANEOUS [None]
  - DRUG EXPOSURE DURING PREGNANCY [None]
  - PREGNANCY [None]
